FAERS Safety Report 16786651 (Version 1)
Quarter: 2019Q3

REPORT INFORMATION
  Report Type: Spontaneous
  Country: US (occurrence: US)
  Receive Date: 20190909
  Receipt Date: 20190909
  Transmission Date: 20191005
  Serious: No
  Sender: FDA-Public Use
  Company Number: US-OSMOTICA_PHARMACEUTICAL_US_LLC-POI0573201900284

PATIENT
  Age: 67 Year
  Sex: Male

DRUGS (3)
  1. OSMOLEX ER [Suspect]
     Active Substance: AMANTADINE
     Indication: PRODUCT USED FOR UNKNOWN INDICATION
     Dates: start: 201906, end: 201907
  2. OSMOLEX ER [Suspect]
     Active Substance: AMANTADINE
     Dates: start: 201907
  3. OSMOLEX ER [Suspect]
     Active Substance: AMANTADINE
     Dates: start: 201907, end: 201907

REACTIONS (4)
  - Amnesia [Recovered/Resolved]
  - Drug ineffective [Recovered/Resolved]
  - Fatigue [Recovered/Resolved]
  - Irritability [Recovered/Resolved]

NARRATIVE: CASE EVENT DATE: 201906
